FAERS Safety Report 14032320 (Version 3)
Quarter: 2018Q1

REPORT INFORMATION
  Report Type: Report from Study
  Country: CO (occurrence: CO)
  Receive Date: 20171003
  Receipt Date: 20180214
  Transmission Date: 20180508
  Serious: Yes (Death, Hospitalization, Other)
  Sender: FDA-Public Use
  Company Number: CO-BRISTOL-MYERS SQUIBB COMPANY-BMS-2017-066054

PATIENT
  Age: 47 Year
  Sex: Female

DRUGS (1)
  1. NIVOLUMAB [Suspect]
     Active Substance: NIVOLUMAB
     Indication: RENAL CANCER
     Dosage: 200 MG, Q2WK
     Route: 042
     Dates: start: 20170626

REACTIONS (6)
  - Biliary tract disorder [Unknown]
  - Haemoglobin decreased [Recovering/Resolving]
  - Gastrointestinal disorder [Unknown]
  - Death [Fatal]
  - Hospitalisation [Recovering/Resolving]
  - Vision blurred [Recovering/Resolving]

NARRATIVE: CASE EVENT DATE: 20170716
